FAERS Safety Report 5227168-1 (Version None)
Quarter: 2007Q1

REPORT INFORMATION
  Report Type: 
  Country: None (occurrence: None)
  Receive Date: 20070201
  Receipt Date: 20070201
  Transmission Date: 20070707
  Serious: No
  Sender: FDA-Public Use
  Company Number: None

PATIENT
  Sex: Male
  Weight: 88.4514 kg

DRUGS (1)
  1. ZOLOFT [Suspect]
     Indication: DEPRESSION
     Dosage: 200MG DAILY PO
     Route: 048
     Dates: start: 19930601, end: 20050810

REACTIONS (4)
  - ERECTILE DYSFUNCTION [None]
  - FEELING HOT [None]
  - PREMATURE EJACULATION [None]
  - SEXUAL DYSFUNCTION [None]
